FAERS Safety Report 6842135-X (Version None)
Quarter: 2010Q3

REPORT INFORMATION
  Report Type: 
  Country: None (occurrence: None)
  Receive Date: 20100714
  Receipt Date: 20070723
  Transmission Date: 20110219
  Serious: No
  Sender: FDA-Public Use
  Company Number: US-PFIZER INC-2007062117

PATIENT
  Age: 34 Year
  Sex: Female
  Weight: 70.454 kg

DRUGS (4)
  1. CHANTIX [Suspect]
     Indication: SMOKING CESSATION THERAPY
     Dates: start: 20070716
  2. ALL OTHER THERAPEUTIC PRODUCTS [Concomitant]
     Indication: THYROID DISORDER
  3. VITAMINS [Concomitant]
  4. MARIJUANA [Concomitant]

REACTIONS (1)
  - URTICARIA [None]
